FAERS Safety Report 8198771-4 (Version None)
Quarter: 2012Q1

REPORT INFORMATION
  Report Type: 
  Country: None (occurrence: None)
  Receive Date: 20120309
  Receipt Date: 20120207
  Transmission Date: 20120608
  Serious: No
  Sender: FDA-Public Use
  Company Number: US-AMGEN-USASP2012008363

PATIENT
  Sex: Male

DRUGS (5)
  1. TESTOSTERONE [Concomitant]
  2. PROLIA [Suspect]
     Indication: OSTEOPOROSIS
     Dosage: 60 MG, Q6MO
     Dates: start: 20120206
  3. ALLOPURINOL [Concomitant]
  4. PRISTIQ [Concomitant]
  5. DIOVAN [Concomitant]

REACTIONS (1)
  - JOINT RANGE OF MOTION DECREASED [None]
